FAERS Safety Report 18925936 (Version 1)
Quarter: 2021Q1

REPORT INFORMATION
  Report Type: Spontaneous
  Country: FR (occurrence: FR)
  Receive Date: 20210223
  Receipt Date: 20210223
  Transmission Date: 20210420
  Serious: Yes (Hospitalization)
  Sender: FDA-Public Use
  Company Number: FR-AUROBINDO-AUR-APL-2021-007312

PATIENT
  Age: 72 Year
  Sex: Male
  Weight: 92.6 kg

DRUGS (3)
  1. SINTROM [Interacting]
     Active Substance: ACENOCOUMAROL
     Indication: MITRAL VALVE DISEASE
     Dosage: 0.5 DOSAGE FORM, ONCE A DAY
     Route: 048
     Dates: end: 20210120
  2. TRAMADOL. [Suspect]
     Active Substance: TRAMADOL
     Indication: PAIN
     Dosage: 1 DOSAGE FORM, ONCE A DAY
     Route: 048
     Dates: start: 20210119, end: 20210119
  3. KETOPROFENE [Concomitant]
     Active Substance: KETOPROFEN
     Indication: PAIN
     Dosage: 1 DOSAGE FORM, ONCE A DAY
     Route: 048
     Dates: start: 20210119, end: 20210119

REACTIONS (2)
  - Anaemia [Recovered/Resolved]
  - International normalised ratio increased [Recovered/Resolved]

NARRATIVE: CASE EVENT DATE: 20210120
